FAERS Safety Report 6310409-7 (Version None)
Quarter: 2009Q3

REPORT INFORMATION
  Report Type: 
  Country: None (occurrence: None)
  Receive Date: 20090814
  Receipt Date: 20090803
  Transmission Date: 20100115
  Serious: Yes (Other)
  Sender: FDA-Public Use
  Company Number: US-PFIZER INC-2009251284

PATIENT
  Sex: Male
  Weight: 56.689 kg

DRUGS (4)
  1. GEODON [Suspect]
     Indication: SCHIZOAFFECTIVE DISORDER
     Dosage: UNK
  2. LEXAPRO [Concomitant]
     Dosage: UNK
  3. AMBIEN [Concomitant]
     Dosage: UNK
  4. TESTOSTERONE [Concomitant]
     Dosage: UNK

REACTIONS (5)
  - AKATHISIA [None]
  - AUTOIMMUNE THYROIDITIS [None]
  - DYSARTHRIA [None]
  - PSYCHOTIC DISORDER [None]
  - RESTLESSNESS [None]
